FAERS Safety Report 8054620-6 (Version None)
Quarter: 2012Q1

REPORT INFORMATION
  Report Type: 
  Country: None (occurrence: None)
  Receive Date: 20120119
  Receipt Date: 20120111
  Transmission Date: 20120608
  Serious: No
  Sender: FDA-Public Use
  Company Number: US-BIOGENIDEC-2012BI001408

PATIENT
  Sex: Male

DRUGS (2)
  1. AVONEX [Suspect]
     Indication: MULTIPLE SCLEROSIS
     Route: 030
     Dates: start: 20061124, end: 20070701
  2. AVONEX [Suspect]
     Route: 030
     Dates: start: 20071031

REACTIONS (2)
  - STRESS [None]
  - SLUGGISHNESS [None]
